FAERS Safety Report 22334495 (Version 1)
Quarter: 2023Q2

REPORT INFORMATION
  Report Type: Spontaneous
  Country: US (occurrence: None)
  Receive Date: 20230517
  Receipt Date: 20230517
  Transmission Date: 20230721
  Serious: No
  Sender: FDA-Public Use
  Company Number: US-ROCHE-3154056

PATIENT
  Sex: Female
  Weight: 90.8 kg

DRUGS (3)
  1. ACTEMRA [Suspect]
     Active Substance: TOCILIZUMAB
     Indication: Rheumatoid arthritis
     Dosage: ONGOING: YES
     Route: 058
     Dates: start: 202206
  2. ACTEMRA [Suspect]
     Active Substance: TOCILIZUMAB
  3. DIPHENHYDRAMINE\ZINC ACETATE [Concomitant]
     Active Substance: DIPHENHYDRAMINE\ZINC ACETATE
     Indication: Injection site reaction
     Route: 061

REACTIONS (1)
  - Injection site reaction [Not Recovered/Not Resolved]
